FAERS Safety Report 4851426-3 (Version None)
Quarter: 2005Q4

REPORT INFORMATION
  Report Type: 
  Country: None (occurrence: None)
  Receive Date: 20051208
  Receipt Date: 20051124
  Transmission Date: 20060501
  Serious: Yes (Death)
  Sender: FDA-Public Use
  Company Number: WAES 0511USA00864

PATIENT
  Age: 94 Year
  Sex: Male

DRUGS (3)
  1. COZAAR [Suspect]
     Indication: HYPERTENSION
     Dosage: 50 MG DAILY, PO
     Route: 048
     Dates: start: 20010316, end: 20041125
  2. AMLODIPINE BESYLATE [Concomitant]
  3. HARNAL [Concomitant]

REACTIONS (2)
  - DECREASED APPETITE [None]
  - NEOPLASM MALIGNANT [None]
